FAERS Safety Report 12116310 (Version 1)
Quarter: 2016Q1

REPORT INFORMATION
  Report Type: Spontaneous
  Country: US (occurrence: US)
  Receive Date: 20160225
  Receipt Date: 20160225
  Transmission Date: 20160526
  Serious: Yes (Other)
  Sender: FDA-Public Use
  Company Number: US-MYLANLABS-2015M1023684

PATIENT
  Sex: Female

DRUGS (2)
  1. HEMODIALYSIS SOLUTION [Concomitant]
     Indication: RENAL FAILURE
     Dosage: UNK
  2. VANCOMYCIN [Suspect]
     Active Substance: VANCOMYCIN
     Dosage: UNK
     Route: 042

REACTIONS (1)
  - Dyspnoea [Recovered/Resolved]
